FAERS Safety Report 4487647-1 (Version None)
Quarter: 2004Q4

REPORT INFORMATION
  Report Type: 
  Country: None (occurrence: None)
  Receive Date: 20041027
  Receipt Date: 20041027
  Transmission Date: 20050328
  Serious: Yes (Hospitalization)
  Sender: FDA-Public Use
  Company Number: None

PATIENT
  Age: 38 Year
  Sex: Female
  Weight: 118 kg

DRUGS (6)
  1. TAXOL [Suspect]
     Indication: BREAST CANCER
     Dosage: T - 80MG/M2 Q WK X 16 IV
     Route: 042
     Dates: start: 20040806, end: 20041008
  2. HERCEPTIN [Suspect]
     Dosage: 4MG/KG WK1, 2MG/K WK 2-16 IV
     Route: 042
  3. CARBOPLATIN [Suspect]
     Dosage: C - AUC 6 WKS 1,5,9,13 IV
     Route: 042
     Dates: start: 20040806
  4. CARBOPLATIN [Suspect]
     Dosage: C - AUC 6 WKS 1,5,9,13 IV
     Route: 042
     Dates: start: 20040903
  5. CARBOPLATIN [Suspect]
     Dosage: C - AUC 6 WKS 1,5,9,13 IV
     Route: 042
     Dates: start: 20041001
  6. ATENOLOL [Concomitant]

REACTIONS (2)
  - CATHETER SITE ERYTHEMA [None]
  - CATHETER SITE PAIN [None]
